FAERS Safety Report 6088963-2 (Version None)
Quarter: 2009Q1

REPORT INFORMATION
  Report Type: 
  Country: None (occurrence: None)
  Receive Date: 20090224
  Receipt Date: 20090217
  Transmission Date: 20090719
  Serious: Yes (Hospitalization)
  Sender: FDA-Public Use
  Company Number: FR-ASTRAZENECA-2009CG00261

PATIENT
  Age: 16133 Day
  Sex: Female
  Weight: 56 kg

DRUGS (4)
  1. NEXIUM [Suspect]
     Indication: GASTROOESOPHAGEAL REFLUX DISEASE
     Route: 048
     Dates: start: 20080101, end: 20080101
  2. NEXIUM [Suspect]
     Route: 048
     Dates: start: 20080101, end: 20080101
  3. NEXIUM [Suspect]
     Route: 048
     Dates: start: 20080101, end: 20080101
  4. NEXIUM [Suspect]
     Route: 048
     Dates: start: 20090107, end: 20090120

REACTIONS (2)
  - HEADACHE [None]
  - VISUAL ACUITY REDUCED [None]
